FAERS Safety Report 10153172 (Version 1)
Quarter: 2014Q2

REPORT INFORMATION
  Report Type: Report from Study
  Country: AR (occurrence: AR)
  Receive Date: 20140505
  Receipt Date: 20140505
  Transmission Date: 20141212
  Serious: Yes (Other)
  Sender: FDA-Public Use
  Company Number: AR-BRISTOL-MYERS SQUIBB COMPANY-20671905

PATIENT
  Age: 67 Year
  Sex: Female

DRUGS (1)
  1. ABATACEPT SUBQ INJECTION 125MG/ML [Suspect]
     Dosage: INTERR ON 25MAR14.
     Route: 058
     Dates: start: 20140304

REACTIONS (3)
  - Embolism [Recovered/Resolved with Sequelae]
  - Antiphospholipid syndrome [Recovered/Resolved with Sequelae]
  - Urticaria [Recovered/Resolved with Sequelae]
